FAERS Safety Report 9013896 (Version 1)
Quarter: 2013Q1

REPORT INFORMATION
  Report Type: Spontaneous
  Country: US (occurrence: None)
  Receive Date: 20130109
  Receipt Date: 20130109
  Transmission Date: 20140127
  Serious: No
  Sender: FDA-Public Use
  Company Number: None

PATIENT
  Sex: Male

DRUGS (1)
  1. ENBREL [Suspect]
     Dates: start: 20120101, end: 20121231

REACTIONS (3)
  - Rash [None]
  - Skin haemorrhage [None]
  - Skin atrophy [None]
